FAERS Safety Report 11652514 (Version 5)
Quarter: 2016Q1

REPORT INFORMATION
  Report Type: Spontaneous
  Country: US (occurrence: US)
  Receive Date: 20151022
  Receipt Date: 20160107
  Transmission Date: 20160525
  Serious: Yes (Hospitalization, Other)
  Sender: FDA-Public Use
  Company Number: US-GLAXOSMITHKLINE-A0932747A

PATIENT
  Age: 60 Year
  Sex: Female

DRUGS (12)
  1. LAMOTRIGINE. [Suspect]
     Active Substance: LAMOTRIGINE
     Indication: EPILEPSY
     Dosage: 700 MG, SINGLE
     Dates: start: 201305
  2. ZOCOR [Concomitant]
     Active Substance: SIMVASTATIN
  3. ZESTRIL [Concomitant]
     Active Substance: LISINOPRIL
  4. LAMICTAL [Suspect]
     Active Substance: LAMOTRIGINE
     Indication: SEIZURE
     Route: 048
     Dates: start: 200801, end: 20110617
  5. IMDUR [Concomitant]
     Active Substance: ISOSORBIDE MONONITRATE
  6. LAMOTRIGINE. [Suspect]
     Active Substance: LAMOTRIGINE
     Indication: SEIZURE
     Route: 048
  7. TOPROL XL [Concomitant]
     Active Substance: METOPROLOL SUCCINATE
  8. LAMICTAL XR [Suspect]
     Active Substance: LAMOTRIGINE
     Indication: SEIZURE
     Route: 048
     Dates: start: 20110617
  9. LEVEMIR [Concomitant]
     Active Substance: INSULIN DETEMIR
  10. NORVASC [Concomitant]
     Active Substance: AMLODIPINE BESYLATE
  11. LISINOPRIL HYDRATE [Concomitant]
  12. NOVOLOG [Concomitant]
     Active Substance: INSULIN ASPART

REACTIONS (14)
  - Muscular weakness [Unknown]
  - Motor dysfunction [Unknown]
  - Disturbance in attention [Unknown]
  - Seizure [Recovered/Resolved]
  - Colonoscopy [Recovered/Resolved]
  - Asthenia [Unknown]
  - Blood test [Unknown]
  - Bone operation [Unknown]
  - Overdose [Unknown]
  - Prescribed overdose [Unknown]
  - Skin lesion excision [Unknown]
  - Hallucination [Unknown]
  - Drug ineffective [Unknown]
  - Colon cancer [Unknown]

NARRATIVE: CASE EVENT DATE: 201009
